FAERS Safety Report 13960485 (Version 2)
Quarter: 2019Q3

REPORT INFORMATION
  Report Type: Spontaneous
  Country: US (occurrence: US)
  Receive Date: 20170912
  Receipt Date: 20190924
  Transmission Date: 20191004
  Serious: No
  Sender: FDA-Public Use
  Company Number: US-FRI-1000075876

PATIENT
  Sex: Male
  Weight: 74.83 kg

DRUGS (2)
  1. LEXAPRO [Suspect]
     Active Substance: ESCITALOPRAM OXALATE
     Indication: ANXIETY
     Dosage: 20 MG, QD
     Route: 048
  2. LEXAPRO [Suspect]
     Active Substance: ESCITALOPRAM OXALATE
     Dosage: 20 MG, QD
     Route: 048

REACTIONS (6)
  - Nightmare [Unknown]
  - Product dose omission [Unknown]
  - Headache [Unknown]
  - Adverse event [Unknown]
  - Drug ineffective [Unknown]
  - Anxiety [Unknown]
